FAERS Safety Report 10177143 (Version 1)
Quarter: 2014Q2

REPORT INFORMATION
  Report Type: Spontaneous
  Country: US (occurrence: None)
  Receive Date: 20140515
  Receipt Date: 20140515
  Transmission Date: 20141212
  Serious: Yes (Other)
  Sender: FDA-Public Use
  Company Number: None

PATIENT
  Age: 21 Year
  Sex: Female
  Weight: 78.02 kg

DRUGS (1)
  1. TOPOMAX [Suspect]
     Indication: MIGRAINE
     Route: 048
     Dates: start: 20120823, end: 201301

REACTIONS (2)
  - Cognitive disorder [None]
  - Paraesthesia [None]
